FAERS Safety Report 5151590-5 (Version None)
Quarter: 2006Q4

REPORT INFORMATION
  Report Type: 
  Country: None (occurrence: None)
  Receive Date: 20061115
  Receipt Date: 20050630
  Transmission Date: 20070319
  Serious: Yes (Disabling, Other)
  Sender: FDA-Public Use
  Company Number: US-BRISTOL-MYERS SQUIBB COMPANY-13131719

PATIENT
  Age: 35 Year
  Sex: Male

DRUGS (6)
  1. SUSTIVA [Suspect]
     Indication: HIV TEST POSITIVE
     Route: 048
     Dates: start: 20050901
  2. COMBIVIR [Concomitant]
     Dates: start: 20050901
  3. DEPAKOTE [Concomitant]
  4. TOPAMAX [Concomitant]
  5. KEPPRA [Concomitant]
  6. ALLEGRA [Concomitant]
     Dates: start: 20050901

REACTIONS (1)
  - CONVULSION [None]
